FAERS Safety Report 7393822-9 (Version None)
Quarter: 2011Q2

REPORT INFORMATION
  Report Type: 
  Country: None (occurrence: None)
  Receive Date: 20110405
  Receipt Date: 20101026
  Transmission Date: 20111010
  Serious: Yes (Hospitalization, Other)
  Sender: FDA-Public Use
  Company Number: US-BAYER-201018542NA

PATIENT
  Sex: Female
  Weight: 60.771 kg

DRUGS (10)
  1. LYSINE [Concomitant]
     Dosage: 100 MG, UNK
     Route: 048
  2. YASMIN [Suspect]
     Indication: DYSMENORRHOEA
     Dosage: (2003 TO 2007) ON AND OFF
     Route: 048
     Dates: start: 20030101, end: 20070101
  3. TOPROL-XL [Concomitant]
     Dates: start: 20060101, end: 20070101
  4. ASCORBIC ACID [Concomitant]
  5. YAZ [Suspect]
     Indication: DYSMENORRHOEA
     Dosage: (2003 TO 2007) ON AND OFF
     Route: 048
     Dates: start: 20030101, end: 20070101
  6. TOPROL-XL [Concomitant]
     Dates: start: 20030101, end: 20040615
  7. TOPROL-XL [Concomitant]
     Dosage: UNK
     Dates: start: 20060101, end: 20070615
  8. NSAID'S [Concomitant]
  9. MICROGESTIN FE 1.5/30 [Concomitant]
  10. COUMADIN [Concomitant]
     Dosage: 8 MG, QD

REACTIONS (8)
  - ALOPECIA [None]
  - HAIR GROWTH ABNORMAL [None]
  - DEEP VEIN THROMBOSIS [None]
  - PULMONARY EMBOLISM [None]
  - THROMBOSIS [None]
  - EMOTIONAL DISTRESS [None]
  - PAIN [None]
  - VEIN DISORDER [None]
